FAERS Safety Report 17298502 (Version 1)
Quarter: 2020Q1

REPORT INFORMATION
  Report Type: Spontaneous
  Country: US (occurrence: US)
  Receive Date: 20200122
  Receipt Date: 20200122
  Transmission Date: 20200409
  Serious: No
  Sender: FDA-Public Use
  Company Number: US-GILEAD-2020-0447398

PATIENT
  Sex: Male

DRUGS (7)
  1. JANUMET [Concomitant]
     Active Substance: METFORMIN HYDROCHLORIDE\SITAGLIPTIN PHOSPHATE
  2. LISINOPRIL. [Concomitant]
     Active Substance: LISINOPRIL
  3. LEVEMIR [Concomitant]
     Active Substance: INSULIN DETEMIR
  4. PERCOCET [Concomitant]
     Active Substance: ACETAMINOPHEN\OXYCODONE HYDROCHLORIDE
  5. STOOL SOFTENER (DOCUSATE) [Concomitant]
     Active Substance: DOCUSATE
  6. ADVIL [IBUPROFEN] [Concomitant]
     Active Substance: IBUPROFEN
  7. EPCLUSA [Suspect]
     Active Substance: SOFOSBUVIR\VELPATASVIR
     Indication: CHRONIC HEPATITIS C
     Dosage: 1 DOSAGE FORM, QD
     Route: 048
     Dates: start: 201909, end: 201912

REACTIONS (1)
  - Fatigue [Recovered/Resolved]
